FAERS Safety Report 15867883 (Version 4)
Quarter: 2019Q3

REPORT INFORMATION
  Report Type: Spontaneous
  Country: US (occurrence: US)
  Receive Date: 20190125
  Receipt Date: 20190731
  Transmission Date: 20191004
  Serious: Yes (Other)
  Sender: FDA-Public Use
  Company Number: US-PFIZER INC-2019032736

PATIENT
  Age: 49 Year
  Sex: Female
  Weight: 53.52 kg

DRUGS (2)
  1. PRISTIQ EXTENDED-RELEASE [Suspect]
     Active Substance: DESVENLAFAXINE SUCCINATE
     Indication: MAJOR DEPRESSION
     Dosage: 50 MG, 2X/DAY
  2. PRISTIQ EXTENDED-RELEASE [Suspect]
     Active Substance: DESVENLAFAXINE SUCCINATE
     Dosage: 100 MG, 1X/DAY (2 TABLETS)
     Route: 048
     Dates: start: 201711

REACTIONS (6)
  - Depression [Unknown]
  - Bipolar disorder [Unknown]
  - Mania [Unknown]
  - Product use issue [Unknown]
  - Suicidal ideation [Unknown]
  - Off label use [Unknown]

NARRATIVE: CASE EVENT DATE: 201711
